FAERS Safety Report 24292259 (Version 1)
Quarter: 2024Q3

REPORT INFORMATION
  Report Type: Spontaneous
  Country: US (occurrence: None)
  Receive Date: 20240906
  Receipt Date: 20240906
  Transmission Date: 20241016
  Serious: No
  Sender: DOMPE FARMACEUTICI
  Company Number: US-FARMAPROD-202307-2247

PATIENT
  Sex: Female

DRUGS (15)
  1. OXERVATE [Suspect]
     Active Substance: CENEGERMIN-BKBJ
     Indication: Neurotrophic keratopathy
     Route: 047
     Dates: start: 20230719
  2. PREDNISOLONE [Concomitant]
     Active Substance: PREDNISOLONE
  3. REFRESH PLUS [Concomitant]
     Active Substance: CARBOXYMETHYLCELLULOSE SODIUM
  4. OMEPRAZOLE [Concomitant]
     Active Substance: OMEPRAZOLE
  5. TYLENOL 8HR [Concomitant]
     Active Substance: ACETAMINOPHEN
  6. THERA-D [Concomitant]
  7. ALLOPURINOL [Concomitant]
     Active Substance: ALLOPURINOL
  8. PLAQUENIL [Concomitant]
     Active Substance: HYDROXYCHLOROQUINE SULFATE
  9. FUROSEMIDE [Concomitant]
     Active Substance: FUROSEMIDE
  10. SPIRONOLACTONE [Concomitant]
     Active Substance: SPIRONOLACTONE
  11. AMBRISENTAN [Concomitant]
     Active Substance: AMBRISENTAN
  12. SILDENAFIL CITRATE [Concomitant]
     Active Substance: SILDENAFIL CITRATE
  13. ELIQUIS [Concomitant]
     Active Substance: APIXABAN
  14. LEXAPRO [Concomitant]
     Active Substance: ESCITALOPRAM OXALATE
  15. METOPROLOL SUCCINATE [Concomitant]
     Active Substance: METOPROLOL SUCCINATE

REACTIONS (3)
  - Vision blurred [Unknown]
  - Eye pain [Unknown]
  - Eyelid pain [Unknown]
